FAERS Safety Report 8984245 (Version 1)
Quarter: 2012Q4

REPORT INFORMATION
  Report Type: Spontaneous
  Country: US (occurrence: None)
  Receive Date: 20121214
  Receipt Date: 20121214
  Transmission Date: 20130627
  Serious: Yes (Hospitalization, Other)
  Sender: FDA-Public Use
  Company Number: TPA2012A08777

PATIENT
  Age: 56 Year
  Sex: Male
  Weight: 90.72 kg

DRUGS (7)
  1. ACTOS (PIOGLITAZONE HYDROCHLORIDE) [Suspect]
     Indication: TYPE 2 DIABETES MELLITUS
     Dates: start: 20111020
  2. ACTOS (PIOGLITAZONE HYDROCHLORIDE) [Suspect]
     Indication: TYPE 2 DIABETES MELLITUS
     Dates: start: 20030120
  3. METFORMIN (METFORMIN) [Concomitant]
  4. GLUCOPHAGE (METFORMIN HYDROCHLORIDE) [Concomitant]
  5. LANTUS (INSULIN GLARGINE) [Concomitant]
  6. GLUCOTROL (GLIPIZIDE) [Concomitant]
  7. JANUMET (METFORMIN HYDROCHLORIDE, SITAGLIPTIN PHOSPHATE MONOHYDRATE) [Concomitant]

REACTIONS (5)
  - Bladder cancer [None]
  - Prostatectomy [None]
  - Kidney infection [None]
  - Renal disorder [None]
  - Lung disorder [None]
